FAERS Safety Report 9348419 (Version 1)
Quarter: 2013Q2

REPORT INFORMATION
  Report Type: Spontaneous
  Country: BR (occurrence: BR)
  Receive Date: 20130614
  Receipt Date: 20130614
  Transmission Date: 20140414
  Serious: Yes (Other)
  Sender: FDA-Public Use
  Company Number: BR-ABBOTT-13X-020-1101286-00

PATIENT
  Age: 79 Year
  Sex: Female
  Weight: 62 kg

DRUGS (7)
  1. RYTMONORM [Suspect]
     Indication: ARRHYTHMIA
     Route: 048
  2. MONTELESS [Concomitant]
     Indication: ASTHMA
     Dosage: 1 TABLET AT NIGHT
     Route: 048
     Dates: start: 201210
  3. FORMOCAPS [Concomitant]
     Indication: ASTHMA
     Dosage: 2 NEBULIZATIONS PER DAY
     Route: 045
     Dates: start: 2003
  4. UNKNOWN MEDICATION [Concomitant]
     Indication: HYPERTENSION
     Route: 048
  5. UNKNOWN MEDICATION [Concomitant]
     Indication: BLOOD CHOLESTEROL ABNORMAL
     Route: 048
  6. LEVOTHYROXINE [Concomitant]
     Indication: THYROID DISORDER
     Route: 048
  7. UNKNOWN MEDICATION [Concomitant]
     Indication: PAIN

REACTIONS (3)
  - Spinal fracture [Recovering/Resolving]
  - Fall [Recovering/Resolving]
  - Pain [Unknown]
